FAERS Safety Report 23680724 (Version 1)
Quarter: 2024Q1

REPORT INFORMATION
  Report Type: Other
  Country: PK (occurrence: None)
  Receive Date: 20240328
  Receipt Date: 20240328
  Transmission Date: 20240410
  Serious: Yes (Death)
  Sender: FDA-Public Use
  Company Number: PK-ROCHE-3534017

PATIENT
  Age: 44 Year
  Sex: Female

DRUGS (2)
  1. AVASTIN [Suspect]
     Active Substance: BEVACIZUMAB
     Indication: Hepatocellular carcinoma
     Route: 042
     Dates: start: 20231201, end: 20240112
  2. TECENTRIQ [Suspect]
     Active Substance: ATEZOLIZUMAB
     Indication: Hepatocellular carcinoma
     Route: 041
     Dates: start: 20231201, end: 20240112

REACTIONS (1)
  - Neoplasm malignant [Fatal]

NARRATIVE: CASE EVENT DATE: 20240311
